FAERS Safety Report 9536678 (Version 1)
Quarter: 2013Q3

REPORT INFORMATION
  Report Type: Spontaneous
  Country: US (occurrence: US)
  Receive Date: 20130919
  Receipt Date: 20130919
  Transmission Date: 20140515
  Serious: Yes (Other)
  Sender: FDA-Public Use
  Company Number: US-009507513-1309USA006831

PATIENT
  Sex: Female

DRUGS (3)
  1. NUVARING [Suspect]
     Indication: CONTRACEPTION
     Dosage: UNK
     Route: 067
     Dates: start: 200707, end: 200808
  2. NUVARING [Suspect]
     Indication: ACNE
     Dosage: UNK
     Route: 067
     Dates: start: 20081111, end: 200905
  3. NUVARING [Suspect]
     Dosage: UNK
     Route: 067
     Dates: start: 200910, end: 20100324

REACTIONS (2)
  - Maternal exposure before pregnancy [Recovered/Resolved]
  - Caesarean section [Recovered/Resolved]
